FAERS Safety Report 4283828-0 (Version None)
Quarter: 2004Q1

REPORT INFORMATION
  Report Type: 
  Country: None (occurrence: None)
  Receive Date: 20040130
  Receipt Date: 20040120
  Transmission Date: 20041129
  Serious: Yes (Death)
  Sender: FDA-Public Use
  Company Number: E129810

PATIENT
  Age: 59 Year
  Sex: Male

DRUGS (2)
  1. CLOPIDOGREL BISULFATE [Suspect]
     Indication: ISCHAEMIC STROKE
     Dosage: 75 MG QD ORAL
     Route: 048
     Dates: start: 20011030
  2. CLOPIDOGREL BISULFATE [Suspect]
     Indication: TRANSIENT ISCHAEMIC ATTACK
     Dosage: 75 MG QD ORAL
     Route: 048
     Dates: start: 20011030

REACTIONS (2)
  - CARDIOVASCULAR DISORDER [None]
  - SUDDEN DEATH [None]
